FAERS Safety Report 25357308 (Version 2)
Quarter: 2025Q2

REPORT INFORMATION
  Report Type: Spontaneous
  Country: CA (occurrence: CA)
  Receive Date: 20250526
  Receipt Date: 20250613
  Transmission Date: 20250717
  Serious: Yes (Other)
  Sender: EXELIXIS
  Company Number: CA-IPSEN Group, Research and Development-2025-11636

PATIENT
  Age: 56 Year
  Sex: Male
  Weight: 55 kg

DRUGS (2)
  1. CABOMETYX [Suspect]
     Active Substance: CABOZANTINIB S-MALATE
     Indication: Neuroendocrine carcinoma metastatic
     Dosage: 60 MG, QD
     Route: 048
     Dates: start: 20250602
  2. CABOMETYX [Suspect]
     Active Substance: CABOZANTINIB S-MALATE
     Dosage: 60 MG, QD
     Route: 048
     Dates: start: 202412

REACTIONS (5)
  - Biliary dilatation [Unknown]
  - Liver function test abnormal [Not Recovered/Not Resolved]
  - Pleural effusion [Unknown]
  - Atelectasis [Unknown]
  - Off label use [Unknown]

NARRATIVE: CASE EVENT DATE: 20241201
